FAERS Safety Report 7245829-X (Version None)
Quarter: 2011Q1

REPORT INFORMATION
  Report Type: 
  Country: None (occurrence: None)
  Receive Date: 20110126
  Receipt Date: 20110120
  Transmission Date: 20110831
  Serious: Yes (Hospitalization, Other)
  Sender: FDA-Public Use
  Company Number: ES-MERCK-1101ESP00028

PATIENT
  Age: 24 Month
  Sex: Female

DRUGS (3)
  1. BUDESONIDE [Concomitant]
     Indication: BRONCHIOLITIS
     Route: 055
     Dates: start: 20090101
  2. SINGULAIR [Suspect]
     Route: 048
     Dates: start: 20100901, end: 20110111
  3. SINGULAIR [Suspect]
     Indication: BRONCHIOLITIS
     Route: 048
     Dates: start: 20090907, end: 20100601

REACTIONS (5)
  - ACUTE ABDOMEN [None]
  - INTESTINAL HAEMATOMA [None]
  - PANCREATIC INJURY [None]
  - TRANSAMINASES INCREASED [None]
  - WHEEZING [None]
